FAERS Safety Report 10699080 (Version 2)
Quarter: 2015Q1

REPORT INFORMATION
  Report Type: Spontaneous
  Country: FR (occurrence: FR)
  Receive Date: 20150108
  Receipt Date: 20150116
  Transmission Date: 20150721
  Serious: Yes (Other)
  Sender: FDA-Public Use
  Company Number: ALCN2014FR007248

PATIENT
  Age: 82 Year
  Sex: Female
  Weight: 72 kg

DRUGS (4)
  1. CRATAEGUS EXTRACT [Concomitant]
     Active Substance: HAWTHORN LEAF WITH FLOWER
     Dosage: UNK
     Route: 047
  2. TILDIEM [Concomitant]
     Active Substance: DILTIAZEM HYDROCHLORIDE
     Dosage: UNK
  3. AZOPT [Suspect]
     Active Substance: BRINZOLAMIDE
     Indication: GLAUCOMA
     Dosage: UNK
     Route: 047
     Dates: start: 20131201, end: 20131221
  4. AZITHROMYCINE [Concomitant]
     Active Substance: AZITHROMYCIN DIHYDRATE
     Indication: BRONCHOSPASM
     Dosage: 5 DAYS PER WEEK
     Route: 047

REACTIONS (9)
  - Bronchospasm [Recovering/Resolving]
  - Throat irritation [Recovering/Resolving]
  - Somnolence [Recovering/Resolving]
  - Pruritus [Recovering/Resolving]
  - Fatigue [Recovering/Resolving]
  - Sinus congestion [Recovering/Resolving]
  - Sneezing [Recovering/Resolving]
  - Joint stiffness [Recovering/Resolving]
  - Peripheral swelling [Recovering/Resolving]
